FAERS Safety Report 26116649 (Version 1)
Quarter: 2025Q4

REPORT INFORMATION
  Report Type: Spontaneous
  Country: US (occurrence: None)
  Receive Date: 20251203
  Receipt Date: 20251203
  Transmission Date: 20260117
  Serious: Yes (Hospitalization)
  Sender: FDA-CTU
  Company Number: None

PATIENT
  Age: 68 Year
  Sex: Male
  Weight: 71.77 kg

DRUGS (2)
  1. PONATINIB [Suspect]
     Active Substance: PONATINIB
     Dates: end: 20251111
  2. PREDNISONE [Suspect]
     Active Substance: PREDNISONE
     Dates: end: 20251111

REACTIONS (2)
  - Deep vein thrombosis [None]
  - Catheter site swelling [None]

NARRATIVE: CASE EVENT DATE: 20251112
